FAERS Safety Report 6064514-3 (Version None)
Quarter: 2009Q1

REPORT INFORMATION
  Report Type: 
  Country: None (occurrence: None)
  Receive Date: 20090204
  Receipt Date: 20090130
  Transmission Date: 20090719
  Serious: Yes (Death, Hospitalization)
  Sender: FDA-Public Use
  Company Number: A0745293A

PATIENT
  Age: 57 Year
  Sex: Female
  Weight: 141.4 kg

DRUGS (8)
  1. AVANDIA [Suspect]
     Route: 048
  2. SYNTHROID [Concomitant]
  3. ALTACE [Concomitant]
  4. COMBIVENT [Concomitant]
  5. POTASSIUM CHLORIDE [Concomitant]
  6. LEVOTHYROXINE [Concomitant]
  7. PREVACID [Concomitant]
  8. LISINOPRIL [Concomitant]

REACTIONS (4)
  - CARDIAC FAILURE CONGESTIVE [None]
  - CARDIOVASCULAR DISORDER [None]
  - DEATH [None]
  - PAIN IN EXTREMITY [None]
